FAERS Safety Report 16878137 (Version 1)
Quarter: 2019Q4

REPORT INFORMATION
  Report Type: Spontaneous
  Country: CA (occurrence: CA)
  Receive Date: 20191002
  Receipt Date: 20191002
  Transmission Date: 20200122
  Serious: Yes (Hospitalization, Other)
  Sender: FDA-Public Use
  Company Number: CA-CELGENEUS-CAN-20180701928

PATIENT
  Age: 67 Year
  Sex: Male

DRUGS (15)
  1. GEMCITABINE. [Suspect]
     Active Substance: GEMCITABINE
     Indication: PANCREATIC CARCINOMA
     Dosage: 1092
     Route: 041
     Dates: start: 20180110
  2. DOCUSATE SODIUM. [Concomitant]
     Active Substance: DOCUSATE SODIUM
     Indication: CONSTIPATION
     Route: 065
     Dates: start: 20171201
  3. L-THYROXINE [Concomitant]
     Active Substance: LEVOTHYROXINE
     Indication: HYPOTHYROIDISM
     Route: 065
     Dates: start: 20180109
  4. PANCREATIN [Concomitant]
     Active Substance: PANCRELIPASE
     Indication: NUTRITIONAL SUPPLEMENTATION
     Route: 065
     Dates: start: 20180315
  5. MORPHINE [Concomitant]
     Active Substance: MORPHINE
     Indication: ABDOMINAL PAIN
     Route: 065
     Dates: start: 20171122
  6. IRBESARTAN. [Concomitant]
     Active Substance: IRBESARTAN
     Indication: HYPERTENSION
     Route: 065
     Dates: start: 200307
  7. SODIUM CITRATE. [Concomitant]
     Active Substance: SODIUM CITRATE
     Indication: CONSTIPATION
     Route: 065
     Dates: start: 20180116
  8. CETIRIZINE [Concomitant]
     Active Substance: CETIRIZINE HYDROCHLORIDE
     Indication: HYPERSENSITIVITY
     Route: 065
     Dates: start: 200001
  9. CETIRIZINE [Concomitant]
     Active Substance: CETIRIZINE HYDROCHLORIDE
     Indication: HYPERSENSITIVITY
  10. LOPERAMIDE [Concomitant]
     Active Substance: LOPERAMIDE
     Indication: EMBOLISM
  11. ABRAXANE [Suspect]
     Active Substance: PACLITAXEL
     Indication: PANCREATIC CARCINOMA
     Dosage: 137 MILLIGRAM
     Route: 041
     Dates: start: 20180110
  12. PANCREATIN [Concomitant]
     Active Substance: PANCRELIPASE
     Indication: EMBOLISM
  13. LOPERAMIDE [Concomitant]
     Active Substance: LOPERAMIDE
     Indication: DIARRHOEA
     Route: 065
     Dates: start: 20180501
  14. DALTEPARIN SODIUM [Concomitant]
     Active Substance: DALTEPARIN SODIUM
     Indication: THROMBOSIS
     Route: 065
     Dates: start: 20180315
  15. DALTEPARIN SODIUM [Concomitant]
     Active Substance: DALTEPARIN SODIUM
     Indication: EMBOLISM

REACTIONS (2)
  - Acute kidney injury [Recovered/Resolved]
  - Sepsis [Recovered/Resolved]

NARRATIVE: CASE EVENT DATE: 20180630
